FAERS Safety Report 8382537-6 (Version None)
Quarter: 2012Q2

REPORT INFORMATION
  Report Type: 
  Country: None (occurrence: None)
  Receive Date: 20120524
  Receipt Date: 20120516
  Transmission Date: 20120825
  Serious: Yes (Other)
  Sender: FDA-Public Use
  Company Number: CA-UCBSA-051445

PATIENT
  Age: 49 Year
  Sex: Female
  Weight: 73 kg

DRUGS (4)
  1. METHOTREXATE [Concomitant]
     Indication: RHEUMATOID ARTHRITIS
     Route: 058
     Dates: start: 20110201
  2. CYMBALTA [Concomitant]
     Route: 048
     Dates: start: 20120404, end: 20120411
  3. CIMZIA [Suspect]
     Indication: RHEUMATOID ARTHRITIS
     Route: 058
     Dates: start: 20110929
  4. CYMBALTA [Concomitant]
     Indication: FIBROMYALGIA
     Route: 048
     Dates: start: 20120412

REACTIONS (3)
  - SINUSITIS [None]
  - FIBROMYALGIA [None]
  - ARTHRITIS [None]
